FAERS Safety Report 6030646-9 (Version None)
Quarter: 2009Q1

REPORT INFORMATION
  Report Type: 
  Country: None (occurrence: None)
  Receive Date: 20090106
  Receipt Date: 20090106
  Transmission Date: 20090719
  Serious: Yes (Life-Threatening, Hospitalization)
  Sender: FDA-Public Use
  Company Number: None

PATIENT
  Age: 45 Year
  Sex: Female
  Weight: 59.8748 kg

DRUGS (2)
  1. NUVARING [Suspect]
     Indication: CONTRACEPTION
     Dosage: 1 RING Q 28 DAYS VAG
     Route: 067
     Dates: start: 20081026, end: 20081120
  2. NUVARING [Suspect]
     Indication: CONTRACEPTION
     Dosage: 1 RING Q 28 DAYS VAG
     Route: 067
     Dates: start: 20081126, end: 20081225

REACTIONS (1)
  - PULMONARY EMBOLISM [None]
